FAERS Safety Report 8887180 (Version 1)
Quarter: 2012Q4

REPORT INFORMATION
  Report Type: 
  Country: US (occurrence: US)
  Receive Date: 20121105
  Receipt Date: 20121105
  Transmission Date: 20130627
  Serious: Yes (Other)
  Sender: FDA-Public Use
  Company Number: US-PFIZER INC-2012275015

PATIENT
  Age: 44 Year
  Sex: Female
  Weight: 89.8 kg

DRUGS (6)
  1. LYRICA [Suspect]
     Indication: FIBROMYALGIA
     Dosage: 150 mg, 3x/day
     Route: 048
  2. ZYPREXA [Suspect]
     Indication: ANXIETY
     Dosage: UNK,daily
     Dates: start: 2011, end: 2011
  3. ZYPREXA [Suspect]
     Indication: DEPRESSION
  4. ACTOS [Concomitant]
     Indication: DIABETES
     Dosage: UNK
  5. HYDROCODONE [Concomitant]
     Indication: PAIN
     Dosage: 10/325 mg, two pills four times a day
  6. HYDROCODONE [Concomitant]
     Indication: BACK PAIN

REACTIONS (6)
  - Convulsion [Unknown]
  - Cardiac arrest [Recovered/Resolved]
  - Loss of consciousness [Recovered/Resolved]
  - Head injury [Unknown]
  - Muscle atrophy [Recovered/Resolved]
  - Dehydration [Recovered/Resolved]
